FAERS Safety Report 9678048 (Version 2)
Quarter: 2014Q1

REPORT INFORMATION
  Report Type: Report from Study
  Country: US (occurrence: US)
  Receive Date: 20131108
  Receipt Date: 20140326
  Transmission Date: 20141002
  Serious: Yes (Other)
  Sender: FDA-Public Use
  Company Number: US-ALEXION PHARMACEUTICALS INC.-A201302916

PATIENT
  Sex: 0

DRUGS (3)
  1. SOLIRIS [Suspect]
     Indication: PAROXYSMAL NOCTURNAL HAEMOGLOBINURIA
     Dosage: 900 MG, Q2W
     Route: 042
     Dates: start: 20080221
  2. NORVASC [Concomitant]
     Indication: HYPERTENSION
     Route: 065
  3. PREDNISONE [Concomitant]
     Indication: POLYMYALGIA RHEUMATICA
     Dosage: 12.5 MG, UNK
     Route: 065

REACTIONS (5)
  - Haemoglobin decreased [Unknown]
  - Cellulitis [Unknown]
  - Upper respiratory tract infection [Unknown]
  - Cough [Not Recovered/Not Resolved]
  - Fatigue [Unknown]
